FAERS Safety Report 23382952 (Version 6)
Quarter: 2024Q3

REPORT INFORMATION
  Report Type: Report from Study
  Country: CA (occurrence: CA)
  Receive Date: 20240109
  Receipt Date: 20240925
  Transmission Date: 20241017
  Serious: Yes (Hospitalization, Other)
  Sender: OTSUKA
  Company Number: CA-OTSUKA-2023_019285

PATIENT
  Age: 32 Year
  Sex: Male

DRUGS (2)
  1. ARIPIPRAZOLE [Suspect]
     Active Substance: ARIPIPRAZOLE
     Indication: Product used for unknown indication
     Dosage: 300 MG, EVERY 30 DAYS
     Route: 030
  2. ARIPIPRAZOLE [Suspect]
     Active Substance: ARIPIPRAZOLE
     Dosage: 400 MG, EVERY 4 WEEKS
     Route: 030

REACTIONS (9)
  - Surgery [Unknown]
  - Hallucination, auditory [Recovering/Resolving]
  - Depressed mood [Unknown]
  - Psychotic disorder [Recovering/Resolving]
  - Depression [Unknown]
  - Social avoidant behaviour [Unknown]
  - Procedural pain [Unknown]
  - Gait disturbance [Unknown]
  - Underdose [Unknown]

NARRATIVE: CASE EVENT DATE: 20240828
